FAERS Safety Report 15776946 (Version 1)
Quarter: 2018Q4

REPORT INFORMATION
  Report Type: Spontaneous
  Country: US (occurrence: US)
  Receive Date: 20181211
  Receipt Date: 20181211
  Transmission Date: 20190205
  Serious: Yes (Death)
  Sender: FDA-Public Use
  Company Number: None

PATIENT
  Age: 91 Year
  Sex: Female

DRUGS (4)
  1. PRAVASTATIN. [Concomitant]
     Active Substance: PRAVASTATIN
  2. DOFETILIDE, 125 UGM [Suspect]
     Active Substance: DOFETILIDE
     Indication: CARDIAC DISORDER
     Route: 048
     Dates: start: 20180330, end: 20181207
  3. MECLIZINE 12.5MG [Concomitant]
  4. NIFECLIPINE 60MG [Concomitant]

REACTIONS (1)
  - Death [None]

NARRATIVE: CASE EVENT DATE: 20181207
